FAERS Safety Report 6131221-8 (Version None)
Quarter: 2009Q1

REPORT INFORMATION
  Report Type: 
  Country: None (occurrence: None)
  Receive Date: 20090325
  Receipt Date: 20090309
  Transmission Date: 20090719
  Serious: Yes (Life-Threatening, Hospitalization)
  Sender: FDA-Public Use
  Company Number: DE-AVENTIS-200912718GDDC

PATIENT
  Age: 77 Year
  Sex: Female
  Weight: 95 kg

DRUGS (10)
  1. GLIBENCLAMIDE [Suspect]
     Route: 048
     Dates: start: 20000101, end: 20080727
  2. MESCORIT [Suspect]
     Indication: TYPE 2 DIABETES MELLITUS
     Route: 048
     Dates: start: 19950101
  3. XIPAMIDE [Suspect]
     Route: 048
     Dates: start: 20000101
  4. LISINOPRIL [Suspect]
     Route: 048
     Dates: start: 20030101, end: 20080727
  5. FURORESE                           /00032601/ [Suspect]
     Route: 048
     Dates: start: 20020101, end: 20080808
  6. METOPROLOL [Suspect]
     Route: 048
     Dates: start: 19990101
  7. SIMVASTATIN [Concomitant]
     Dosage: DOSE: UNK
     Dates: start: 20020101
  8. PANTOZOL                           /01263202/ [Concomitant]
     Dosage: DOSE: UNK
     Dates: start: 20060101
  9. ASPIRIN [Concomitant]
     Dosage: DOSE: UNK
     Dates: start: 20020101
  10. TORASEMIDE [Concomitant]
     Dosage: DOSE: UNK

REACTIONS (2)
  - HYPOGLYCAEMIA [None]
  - RENAL FAILURE ACUTE [None]
